FAERS Safety Report 5571364-0 (Version None)
Quarter: 2007Q4

REPORT INFORMATION
  Report Type: 
  Country: None (occurrence: None)
  Receive Date: 20071221
  Receipt Date: 20070822
  Transmission Date: 20080405
  Serious: No
  Sender: FDA-Public Use
  Company Number: A0674713A

PATIENT
  Sex: Female

DRUGS (8)
  1. FLONASE [Suspect]
     Route: 045
     Dates: start: 20040101, end: 20060101
  2. FOSAMAX [Concomitant]
  3. AMITRIPTLINE HCL [Concomitant]
  4. FOLIC ACID [Concomitant]
  5. METHOTREXATE [Concomitant]
  6. POTASSIUM CHLORIDE [Concomitant]
  7. PREDNISONE [Concomitant]
  8. TRIAMTERENE [Concomitant]

REACTIONS (2)
  - DYSPNOEA [None]
  - NASAL OEDEMA [None]
